FAERS Safety Report 8555542-4 (Version None)
Quarter: 2012Q3

REPORT INFORMATION
  Report Type: 
  Country: None (occurrence: None)
  Receive Date: 20120731
  Receipt Date: 20111004
  Transmission Date: 20120928
  Serious: No
  Sender: FDA-Public Use
  Company Number: US-ASTRAZENECA-2010SE10359

PATIENT
  Age: 58 Year
  Sex: Female
  Weight: 65.8 kg

DRUGS (10)
  1. SEROQUEL [Suspect]
     Dosage: TWO TABLETS CUT IN HALF TO MAKE A TOTAL OF 4 DOSES
     Route: 048
  2. SEROQUEL [Suspect]
     Indication: BIPOLAR I DISORDER
     Route: 048
     Dates: start: 20080101
  3. SEROQUEL [Suspect]
     Route: 048
     Dates: start: 20100101
  4. SEROQUEL [Suspect]
     Route: 048
  5. SEROQUEL [Suspect]
     Dosage: TWO TABLETS CUT IN HALF TO MAKE A TOTAL OF 4 DOSES
     Route: 048
  6. SEROQUEL [Suspect]
     Route: 048
  7. SEROQUEL [Suspect]
     Route: 048
     Dates: start: 20100101
  8. SEROQUEL [Suspect]
     Indication: SLEEP DISORDER THERAPY
     Route: 048
     Dates: start: 20080101
  9. XANAX XR [Concomitant]
     Indication: ANXIETY
     Route: 048
     Dates: start: 20100101
  10. WELLBUTRIN SR [Concomitant]
     Indication: DEPRESSION
     Route: 048

REACTIONS (14)
  - WEIGHT INCREASED [None]
  - NERVOUSNESS [None]
  - ANHEDONIA [None]
  - NASAL CONGESTION [None]
  - ASTHENIA [None]
  - RASH [None]
  - CONSTIPATION [None]
  - OFF LABEL USE [None]
  - HANGOVER [None]
  - SEXUAL DYSFUNCTION [None]
  - INSOMNIA [None]
  - FATIGUE [None]
  - DRUG INTOLERANCE [None]
  - WRONG TECHNIQUE IN DRUG USAGE PROCESS [None]
